FAERS Safety Report 5281569-4 (Version None)
Quarter: 2007Q1

REPORT INFORMATION
  Report Type: 
  Country: None (occurrence: None)
  Receive Date: 20070330
  Receipt Date: 20070328
  Transmission Date: 20070707
  Serious: Yes (Hospitalization)
  Sender: FDA-Public Use
  Company Number: US-BRISTOL-MYERS SQUIBB COMPANY-13701909

PATIENT
  Age: 44 Year
  Sex: Female
  Weight: 83 kg

DRUGS (10)
  1. ERBITUX [Suspect]
     Indication: BREAST CANCER METASTATIC
     Route: 042
     Dates: start: 20070227, end: 20070227
  2. CARBOPLATIN [Suspect]
     Indication: BREAST CANCER METASTATIC
     Route: 042
     Dates: start: 20070227, end: 20070227
  3. IRINOTECAN HCL [Suspect]
     Indication: BREAST CANCER METASTATIC
     Route: 042
     Dates: start: 20070227, end: 20070227
  4. VICODIN [Concomitant]
     Indication: CHEST PAIN
     Route: 048
     Dates: start: 20060301
  5. ARANESP [Concomitant]
     Indication: ANAEMIA
     Route: 058
     Dates: start: 20060427
  6. COMPAZINE [Concomitant]
     Indication: PROPHYLAXIS
     Route: 048
     Dates: start: 20061207
  7. CIPRO [Concomitant]
     Indication: SKIN ULCER
     Route: 048
     Dates: start: 20061208
  8. NEULASTA [Concomitant]
     Indication: PROPHYLAXIS
     Route: 058
     Dates: start: 20070117
  9. POTASSIUM ACETATE [Concomitant]
     Indication: HYPOKALAEMIA
     Route: 048
     Dates: start: 20070103
  10. MAGNESIUM [Concomitant]
     Indication: HYPOMAGNESAEMIA
     Route: 048
     Dates: start: 20070220

REACTIONS (3)
  - FEBRILE NEUTROPENIA [None]
  - SEPSIS [None]
  - SKIN ULCER [None]
